FAERS Safety Report 14116555 (Version 1)
Quarter: 2017Q4

REPORT INFORMATION
  Report Type: Spontaneous
  Country: US (occurrence: US)
  Receive Date: 20171023
  Receipt Date: 20171023
  Transmission Date: 20180321
  Serious: No
  Sender: FDA-Public Use
  Company Number: US-DEPOMED, INC.-US-2016DEP012486

PATIENT

DRUGS (3)
  1. NUCYNTA ER [Suspect]
     Active Substance: TAPENTADOL HYDROCHLORIDE
     Indication: PAIN
     Dosage: 150 MG, BID, ONE TABLET AT 5 AM AND ANOTHER AT 5 PM
     Route: 048
     Dates: start: 201608, end: 201610
  2. NUCYNTA ER [Suspect]
     Active Substance: TAPENTADOL HYDROCHLORIDE
     Dosage: 50 MG, BID, ONE TABLET AT 12 NOON AND ANOTHER AT 9 PM
     Route: 048
     Dates: start: 201608, end: 201610
  3. NUCYNTA ER [Suspect]
     Active Substance: TAPENTADOL HYDROCHLORIDE
     Dosage: 200 MG, BID, ONE TABLET AT 5 AM AND ANOTHER AT 5 PM
     Route: 048
     Dates: start: 201610

REACTIONS (2)
  - Drug effect decreased [Not Recovered/Not Resolved]
  - Unevaluable event [Not Recovered/Not Resolved]

NARRATIVE: CASE EVENT DATE: 2016
